FAERS Safety Report 10757416 (Version 1)
Quarter: 2015Q1

REPORT INFORMATION
  Report Type: Spontaneous
  Country: CN (occurrence: None)
  Receive Date: 20150130
  Receipt Date: 20150130
  Transmission Date: 20150721
  Serious: Yes (Hospitalization)
  Sender: FDA-Public Use
  Company Number: 8006843

PATIENT
  Age: 4 Year
  Sex: Male

DRUGS (1)
  1. EUTHYROX 50 MCG (LEVOTHYROXINE SODIUM) (TABLET) (LEVOTHYROXINE SODIUM) [Suspect]
     Active Substance: LEVOTHYROXINE SODIUM
     Indication: PRODUCT USED FOR UNKNOWN INDICATION
     Route: 048
     Dates: start: 20150124, end: 20150124

REACTIONS (3)
  - No adverse event [None]
  - Accidental overdose [None]
  - Accidental exposure to product by child [None]

NARRATIVE: CASE EVENT DATE: 20150124
